FAERS Safety Report 18776971 (Version 2)
Quarter: 2021Q1

REPORT INFORMATION
  Report Type: Report from Study
  Country: None (occurrence: IT)
  Receive Date: 20210122
  Receipt Date: 20210201
  Transmission Date: 20210419
  Serious: Yes (Hospitalization)
  Sender: FDA-Public Use
  Company Number: IT-ABBVIE-21K-083-3742490-00

PATIENT
  Age: 70 Year
  Sex: Male

DRUGS (2)
  1. DUODOPA [Suspect]
     Active Substance: CARBIDOPA\LEVODOPA
  2. DUODOPA [Suspect]
     Active Substance: CARBIDOPA\LEVODOPA
     Indication: PARKINSON^S DISEASE
     Dosage: DAILY DOSE: 1292 MG; PUMP SETTING: MD: 9,2+3 CR: 3,8 (13H), ED: 3
     Route: 050
     Dates: start: 20150420

REACTIONS (3)
  - Discoloured vomit [Unknown]
  - General physical health deterioration [Unknown]
  - Bedridden [Unknown]

NARRATIVE: CASE EVENT DATE: 202101
